FAERS Safety Report 7518871-9 (Version None)
Quarter: 2011Q2

REPORT INFORMATION
  Report Type: 
  Country: None (occurrence: None)
  Receive Date: 20110602
  Receipt Date: 20110601
  Transmission Date: 20111010
  Serious: Yes (Hospitalization)
  Sender: FDA-Public Use
  Company Number: IT-BRISTOL-MYERS SQUIBB COMPANY-15374630

PATIENT
  Age: 75 Year
  Sex: Female

DRUGS (4)
  1. IRBESARTAN AND HYDROCHLOROTHIAZIDE [Suspect]
     Indication: HYPERTENSION
     Dosage: DOSE REDUCED ON UNKNOWN DATE
     Route: 048
     Dates: start: 20030101, end: 20101001
  2. ESCITALOPRAM [Concomitant]
     Route: 048
  3. SOLIAN [Suspect]
     Indication: PSYCHOTIC DISORDER
     Dosage: SOLIAN 200MG TABS
     Route: 048
     Dates: start: 20100823, end: 20101023
  4. TOTALIP [Concomitant]
     Indication: HYPERCHOLESTEROLAEMIA
     Route: 048

REACTIONS (4)
  - HYPERTENSIVE CARDIOMYOPATHY [None]
  - ELECTROCARDIOGRAM QT PROLONGED [None]
  - HYPOKALAEMIA [None]
  - ATRIOVENTRICULAR BLOCK COMPLETE [None]
